FAERS Safety Report 4998837-3 (Version None)
Quarter: 2006Q2

REPORT INFORMATION
  Report Type: 
  Country: None (occurrence: None)
  Receive Date: 20060510
  Receipt Date: 20060407
  Transmission Date: 20061013
  Serious: Yes (Hospitalization)
  Sender: FDA-Public Use
  Company Number: NZ-MERCK-0604NZL00003

PATIENT
  Age: 84 Year
  Sex: Female
  Weight: 60 kg

DRUGS (12)
  1. TIMOPTIC-XE [Suspect]
     Indication: GLAUCOMA
     Route: 047
     Dates: start: 20030101
  2. ETIDRONATE DISODIUM [Concomitant]
     Route: 048
  3. ACETAMINOPHEN [Concomitant]
     Route: 048
  4. ATORVASTATIN CALCIUM [Concomitant]
     Route: 048
  5. METOPROLOL [Concomitant]
     Route: 048
  6. PANTOPRAZOLE SODIUM [Concomitant]
     Route: 048
  7. FUROSEMIDE [Concomitant]
     Route: 048
  8. CANDESARTAN [Concomitant]
     Route: 048
  9. DICLOFENAC SODIUM [Concomitant]
     Route: 048
  10. CALCIUM CARBONATE [Concomitant]
     Route: 048
  11. ASPIRIN [Concomitant]
     Route: 048
  12. BECLOMETHASONE DIPROPIONATE [Concomitant]
     Route: 065
     Dates: start: 20030101

REACTIONS (6)
  - AGEUSIA [None]
  - ANOSMIA [None]
  - CATARACT [None]
  - CATARACT OPERATION [None]
  - CIRCUMSTANCE OR INFORMATION CAPABLE OF LEADING TO MEDICATION ERROR [None]
  - DRUG ADMINISTRATION ERROR [None]
